FAERS Safety Report 6235277-3 (Version None)
Quarter: 2009Q2

REPORT INFORMATION
  Report Type: 
  Country: None (occurrence: None)
  Receive Date: 20090618
  Receipt Date: 20090603
  Transmission Date: 20091009
  Serious: Yes (Hospitalization)
  Sender: FDA-Public Use
  Company Number: GB-GENENTECH-284935

PATIENT
  Age: 21 Year
  Sex: Female

DRUGS (1)
  1. XOLAIR [Suspect]
     Indication: DRUG USE FOR UNKNOWN INDICATION
     Dosage: 375 MG, UNKNOWN
     Route: 065

REACTIONS (3)
  - ASTHMA [None]
  - CERVIX HAEMORRHAGE UTERINE [None]
  - INJECTION SITE HAEMORRHAGE [None]
